FAERS Safety Report 7433414-6 (Version None)
Quarter: 2011Q2

REPORT INFORMATION
  Report Type: 
  Country: None (occurrence: None)
  Receive Date: 20110422
  Receipt Date: 20110415
  Transmission Date: 20111010
  Serious: Yes (Hospitalization)
  Sender: FDA-Public Use
  Company Number: US-ELI_LILLY_AND_COMPANY-US201104005115

PATIENT
  Age: 79 Year
  Sex: Female

DRUGS (2)
  1. HUMALOG [Suspect]
     Indication: DIABETES MELLITUS
     Dosage: 4 U, TID
     Dates: start: 19910101
  2. LANTUS [Concomitant]
     Dosage: UNK

REACTIONS (4)
  - LOWER LIMB FRACTURE [None]
  - BLOOD GLUCOSE INCREASED [None]
  - DEMENTIA [None]
  - AGGRESSION [None]
